FAERS Safety Report 24731650 (Version 1)
Quarter: 2024Q4

REPORT INFORMATION
  Report Type: Spontaneous
  Country: JP (occurrence: JP)
  Receive Date: 20241213
  Receipt Date: 20241213
  Transmission Date: 20250115
  Serious: Yes (Death, Other)
  Sender: EISAI
  Company Number: JP-Eisai-EC-2024-180630

PATIENT
  Sex: Female

DRUGS (6)
  1. LENVIMA [Suspect]
     Active Substance: LENVATINIB
     Indication: Thyroid cancer
     Route: 048
     Dates: start: 20201117, end: 20201120
  2. LENVIMA [Suspect]
     Active Substance: LENVATINIB
     Route: 048
     Dates: start: 20201121, end: 20201130
  3. LENVIMA [Suspect]
     Active Substance: LENVATINIB
     Dosage: 5 DAYS-ON AND 2 DAYS-OFF REGIMEN (BETWEEN MONDAY AND FRIDAY ORAL ADMINISTRATION WITH INTERRUPTION ON
     Route: 048
     Dates: start: 20201201, end: 20210111
  4. LENVIMA [Suspect]
     Active Substance: LENVATINIB
     Dosage: 5 DAYS-ON AND 2 DAYS-OFF REGIMEN (BETWEEN MONDAY AND FRIDAY ORAL ADMINISTRATION WITH INTERRUPTION ON
     Route: 048
     Dates: start: 20210112, end: 20210125
  5. LENVIMA [Suspect]
     Active Substance: LENVATINIB
     Dosage: 5 DAYS-ON AND 2 DAYS-OFF REGIMEN (BETWEEN MONDAY AND FRIDAY ORAL ADMINISTRATION WITH INTERRUPTION ON
     Route: 048
     Dates: start: 20210126, end: 20220201
  6. LENVIMA [Suspect]
     Active Substance: LENVATINIB
     Dosage: 5 DAYS-ON AND 2 DAYS-OFF REGIMEN (BETWEEN MONDAY AND FRIDAY ORAL ADMINISTRATION WITH INTERRUPTION ON
     Route: 048
     Dates: start: 20220221

REACTIONS (2)
  - Oesophageal stenosis [Unknown]
  - Sudden death [Fatal]

NARRATIVE: CASE EVENT DATE: 20241122
